FAERS Safety Report 24405502 (Version 1)
Quarter: 2024Q4

REPORT INFORMATION
  Report Type: Spontaneous
  Country: RU (occurrence: RU)
  Receive Date: 20241007
  Receipt Date: 20241007
  Transmission Date: 20250115
  Serious: Yes (Life-Threatening, Other)
  Sender: SEPTODONT
  Company Number: None

PATIENT
  Age: 5 Year
  Sex: Male

DRUGS (2)
  1. ARTICAINE HYDROCHLORIDE\EPINEPHRINE BITARTRATE [Suspect]
     Active Substance: ARTICAINE HYDROCHLORIDE\EPINEPHRINE BITARTRATE
     Indication: Dental local anaesthesia
     Dosage: 1 ML
     Route: 065
     Dates: start: 20240909, end: 20240910
  2. BENZOCAINE [Suspect]
     Active Substance: BENZOCAINE
     Indication: Dental care
     Dosage: 0.5 ML
     Dates: start: 20240909, end: 20240910

REACTIONS (4)
  - Angioedema [Recovered/Resolved]
  - Face oedema [Unknown]
  - Throat clearing [Unknown]
  - Oropharyngeal pain [Unknown]

NARRATIVE: CASE EVENT DATE: 20240909
